FAERS Safety Report 24768067 (Version 1)
Quarter: 2024Q4

REPORT INFORMATION
  Report Type: Spontaneous
  Country: CA (occurrence: CA)
  Receive Date: 20241223
  Receipt Date: 20241223
  Transmission Date: 20250115
  Serious: Yes (Hospitalization, Other)
  Sender: BAUSCH AND LOMB
  Company Number: CA-BAUSCH-BL-2024-018431

PATIENT
  Age: 11 Year
  Sex: Male

DRUGS (81)
  1. LORAZEPAM [Suspect]
     Active Substance: LORAZEPAM
     Indication: Seizure
     Dosage: NOT SPECIFIED
     Route: 065
  2. LORAZEPAM [Suspect]
     Active Substance: LORAZEPAM
     Indication: Muscle spasms
     Route: 065
  3. LORAZEPAM [Suspect]
     Active Substance: LORAZEPAM
     Indication: Back pain
     Route: 060
  4. LORAZEPAM [Suspect]
     Active Substance: LORAZEPAM
     Indication: Pain management
     Route: 060
  5. LORAZEPAM [Suspect]
     Active Substance: LORAZEPAM
     Route: 060
  6. LORAZEPAM [Suspect]
     Active Substance: LORAZEPAM
     Route: 060
  7. ALBUTEROL [Suspect]
     Active Substance: ALBUTEROL
     Indication: Product used for unknown indication
     Dosage: ROUTE OF ADMINISTRATION - INHALATION?NOT SPECIFIED
     Route: 065
  8. ALBUTEROL [Suspect]
     Active Substance: ALBUTEROL
     Route: 065
  9. ALBUTEROL [Suspect]
     Active Substance: ALBUTEROL
     Dosage: 2 ADMINISTRATIONS
     Route: 065
  10. BACLOFEN [Suspect]
     Active Substance: BACLOFEN
     Indication: Product used for unknown indication
     Dosage: FREQUENCY - 3 EVERY 1 DAYS
     Route: 048
  11. BACLOFEN [Suspect]
     Active Substance: BACLOFEN
     Dosage: NOT SPECIFIED
     Route: 048
  12. BISACODYL [Suspect]
     Active Substance: BISACODYL
     Indication: Product used for unknown indication
     Dosage: NOT SPECIFIED
     Route: 048
  13. CELECOXIB [Suspect]
     Active Substance: CELECOXIB
     Indication: Pain management
     Route: 048
  14. CELECOXIB [Suspect]
     Active Substance: CELECOXIB
     Indication: Back pain
     Dosage: 2 EVERY 1 DAYS
     Route: 048
  15. CELECOXIB [Suspect]
     Active Substance: CELECOXIB
     Route: 048
  16. CHOLECALCIFEROL [Suspect]
     Active Substance: CHOLECALCIFEROL
     Indication: Vitamin supplementation
     Dosage: NOT SPECIFIED
     Route: 048
  17. CLOBAZAM [Suspect]
     Active Substance: CLOBAZAM
     Indication: Back pain
     Dosage: 2 EVERY 1 DAYS
     Route: 048
  18. CLOBAZAM [Suspect]
     Active Substance: CLOBAZAM
     Route: 048
  19. CLONIDINE [Suspect]
     Active Substance: CLONIDINE
     Indication: Product used for unknown indication
     Route: 048
  20. CLONIDINE [Suspect]
     Active Substance: CLONIDINE
     Route: 048
  21. DIMENHYDRINATE [Suspect]
     Active Substance: DIMENHYDRINATE
     Indication: Pruritus
     Dosage: NOT SPECIFIED
     Route: 048
  22. DIMENHYDRINATE [Suspect]
     Active Substance: DIMENHYDRINATE
     Indication: Constipation
     Route: 048
  23. DIMENHYDRINATE [Suspect]
     Active Substance: DIMENHYDRINATE
     Route: 048
  24. DIPHENHYDRAMINE [Suspect]
     Active Substance: DIPHENHYDRAMINE
     Indication: Pruritus
     Route: 048
  25. DOCONEXENT [Suspect]
     Active Substance: DOCONEXENT
     Indication: Product used for unknown indication
     Route: 065
  26. DULCOLAX (DOCUSATE SODIUM) [Suspect]
     Active Substance: DOCUSATE SODIUM
     Indication: Product used for unknown indication
     Route: 048
  27. ELIGARD [Suspect]
     Active Substance: LEUPROLIDE ACETATE
     Indication: Precocious puberty
     Route: 058
  28. ELIGARD [Suspect]
     Active Substance: LEUPROLIDE ACETATE
     Route: 030
  29. ELIGARD [Suspect]
     Active Substance: LEUPROLIDE ACETATE
     Dosage: POWDER FOR SUSPENSION, SUSTAINED RELEASE
     Route: 030
  30. FLUOXETINE [Suspect]
     Active Substance: FLUOXETINE HYDROCHLORIDE
     Indication: Product used for unknown indication
     Dosage: NOT SPECIFIED
     Route: 048
  31. FLUTICASONE [Suspect]
     Active Substance: FLUTICASONE
     Indication: Product used for unknown indication
     Dosage: 2 ADMINISTRATIONS
     Route: 065
  32. FLUTICASONE [Suspect]
     Active Substance: FLUTICASONE
     Dosage: NOT SPECIFIED
     Route: 048
  33. FLUTICASONE [Suspect]
     Active Substance: FLUTICASONE
     Route: 048
  34. FLUTICASONE [Suspect]
     Active Substance: FLUTICASONE
     Dosage: INHALATION
     Route: 065
  35. GABAPENTIN [Suspect]
     Active Substance: GABAPENTIN
     Indication: Pain management
     Route: 048
  36. GABAPENTIN [Suspect]
     Active Substance: GABAPENTIN
     Indication: Back pain
     Dosage: 2 EVERY 1 DAYS
     Route: 048
  37. GABAPENTIN [Suspect]
     Active Substance: GABAPENTIN
     Dosage: NOT SPECIFIED
     Route: 048
  38. HYDROMORPHONE [Suspect]
     Active Substance: HYDROMORPHONE
     Indication: Back pain
     Dosage: NOT SPECIFIED
     Route: 065
  39. HYDROMORPHONE [Suspect]
     Active Substance: HYDROMORPHONE
     Indication: Pain management
     Route: 065
  40. HYDROMORPHONE HYDROCHLORIDE [Suspect]
     Active Substance: HYDROMORPHONE HYDROCHLORIDE
     Indication: Pain management
     Route: 065
  41. HYDROMORPHONE HYDROCHLORIDE [Suspect]
     Active Substance: HYDROMORPHONE HYDROCHLORIDE
     Indication: Back pain
     Route: 060
  42. HYDROXYCHLOROQUINE [Suspect]
     Active Substance: HYDROXYCHLOROQUINE
     Indication: Product used for unknown indication
     Route: 048
  43. KETOROLAC [Suspect]
     Active Substance: KETOROLAC TROMETHAMINE
     Indication: Pain
     Route: 048
  44. LEUPROLIDE [Suspect]
     Active Substance: LEUPROLIDE
     Indication: Product used for unknown indication
     Route: 030
  45. LEUPROLIDE [Suspect]
     Active Substance: LEUPROLIDE
     Dosage: NOT SPECIFIED
     Route: 030
  46. LEUPROLIDE ACETATE [Suspect]
     Active Substance: LEUPROLIDE ACETATE
     Indication: Product used for unknown indication
     Route: 030
  47. POLYETHYLENE GLYCOLS [Suspect]
     Active Substance: POLYETHYLENE GLYCOLS
     Indication: Product used for unknown indication
     Route: 048
  48. POLYETHYLENE GLYCOL 3350 [Suspect]
     Active Substance: POLYETHYLENE GLYCOL 3350
     Indication: Product used for unknown indication
     Route: 048
  49. POLYETHYLENE GLYCOL 3350 [Suspect]
     Active Substance: POLYETHYLENE GLYCOL 3350
     Dosage: NOT SPECIFIED
     Route: 048
  50. MELATONIN [Suspect]
     Active Substance: MELATONIN
     Indication: Child abuse
     Route: 048
  51. MELATONIN [Suspect]
     Active Substance: MELATONIN
     Indication: Sleep deficit
     Dosage: NOT SPECIFIED
     Route: 048
  52. MELATONIN [Suspect]
     Active Substance: MELATONIN
     Indication: Sleep disorder
  53. METHADONE [Suspect]
     Active Substance: METHADONE HYDROCHLORIDE
     Indication: Sleep disorder
     Route: 048
  54. METHADONE [Suspect]
     Active Substance: METHADONE HYDROCHLORIDE
     Indication: Back pain
     Route: 048
  55. METHADONE [Suspect]
     Active Substance: METHADONE HYDROCHLORIDE
     Dosage: NOT SPECIFIED
     Route: 048
  56. METHOCARBAMOL [Suspect]
     Active Substance: METHOCARBAMOL
     Indication: Back pain
     Route: 048
  57. METHOCARBAMOL [Suspect]
     Active Substance: METHOCARBAMOL
     Dosage: NOT SPECIFIED
     Route: 048
  58. OMEGA 3 [Suspect]
     Active Substance: CAPSAICIN
     Indication: Product used for unknown indication
     Dosage: 3 ADMINISTRATION
     Route: 048
  59. OMEGA 3 [Suspect]
     Active Substance: CAPSAICIN
     Dosage: 3 ADMINISTRATION
     Route: 048
  60. OMEGA 3 [Suspect]
     Active Substance: CAPSAICIN
     Route: 048
  61. PHENOBARBITAL [Suspect]
     Active Substance: PHENOBARBITAL
     Indication: Product used for unknown indication
     Dosage: 2 EVERY 1 DAYS
     Route: 048
  62. PHENOBARBITAL [Suspect]
     Active Substance: PHENOBARBITAL
     Dosage: NOT SPECIFIED
     Route: 048
  63. RANITIDINE [Suspect]
     Active Substance: RANITIDINE
     Indication: Product used for unknown indication
     Route: 048
  64. ROBAXACET [Suspect]
     Active Substance: ACETAMINOPHEN\METHOCARBAMOL
     Indication: Back pain
     Dosage: NOT SPECIFIED
     Route: 048
  65. ROBAXACET [Suspect]
     Active Substance: ACETAMINOPHEN\METHOCARBAMOL
     Route: 048
  66. ROBAXISAL [Suspect]
     Active Substance: ASPIRIN\METHOCARBAMOL
     Indication: Product used for unknown indication
     Route: 048
  67. ROBAXISAL [Suspect]
     Active Substance: ASPIRIN\METHOCARBAMOL
     Dosage: NOT SPECIFIED
     Route: 048
  68. ARIPIPRAZOLE [Suspect]
     Active Substance: ARIPIPRAZOLE
     Indication: Schizophrenia
     Route: 065
  69. ARIPIPRAZOLE [Suspect]
     Active Substance: ARIPIPRAZOLE
     Route: 048
  70. ARIPIPRAZOLE [Suspect]
     Active Substance: ARIPIPRAZOLE
     Route: 048
  71. MONTELUKAST SODIUM [Suspect]
     Active Substance: MONTELUKAST\MONTELUKAST SODIUM
     Indication: Product used for unknown indication
     Route: 048
  72. PANTOPRAZOLE SODIUM [Suspect]
     Active Substance: PANTOPRAZOLE SODIUM
     Indication: Product used for unknown indication
     Dosage: (DELAYEDRELEASE)
     Route: 048
  73. TYLENOL EXTRA STRENGTH [Suspect]
     Active Substance: ACETAMINOPHEN
     Indication: Back pain
     Route: 048
  74. VITAMIN C [Suspect]
     Active Substance: ASCORBIC ACID
     Indication: Product used for unknown indication
     Route: 048
  75. VITAMIN C [Suspect]
     Active Substance: ASCORBIC ACID
     Dosage: NOT SPECIFIED
     Route: 048
  76. VITAMIN D3 [Suspect]
     Active Substance: CHOLECALCIFEROL
     Indication: Vitamin supplementation
     Dosage: 2 ADMINISTRATIONS
     Route: 065
  77. VITAMIN D3 [Suspect]
     Active Substance: CHOLECALCIFEROL
     Route: 048
  78. VITAMIN D3 [Suspect]
     Active Substance: CHOLECALCIFEROL
     Route: 048
  79. VITAMIN D3 [Suspect]
     Active Substance: CHOLECALCIFEROL
     Route: 048
  80. ALBUTEROL [Suspect]
     Active Substance: ALBUTEROL
     Indication: Product used for unknown indication
     Route: 065
  81. POLYETHYLENE GLYCOL 3350\POTASSIUM CHLORIDE\SODIUM BICARBONATE\SODIUM [Concomitant]
     Active Substance: POLYETHYLENE GLYCOL 3350\POTASSIUM CHLORIDE\SODIUM BICARBONATE\SODIUM CHLORIDE
     Indication: Product used for unknown indication
     Route: 065

REACTIONS (16)
  - Epidural lipomatosis [Recovered/Resolved]
  - Juvenile idiopathic arthritis [Recovered/Resolved]
  - Obesity [Recovered/Resolved]
  - Tenderness [Recovered/Resolved]
  - Respiratory depression [Recovered/Resolved]
  - Drug abuse [Recovered/Resolved]
  - Drug dependence [Recovered/Resolved]
  - Drug ineffective [Recovered/Resolved]
  - Child abuse [Recovered/Resolved]
  - Victim of child abuse [Recovered/Resolved]
  - Product prescribing error [Recovered/Resolved]
  - Intentional product misuse [Recovered/Resolved]
  - Off label use [Recovered/Resolved]
  - Product use in unapproved indication [Recovered/Resolved]
  - Product use issue [Recovered/Resolved]
  - Inappropriate schedule of product administration [Recovered/Resolved]
